FAERS Safety Report 23378378 (Version 6)
Quarter: 2024Q2

REPORT INFORMATION
  Report Type: Spontaneous
  Country: US (occurrence: US)
  Receive Date: 20240108
  Receipt Date: 20240624
  Transmission Date: 20240715
  Serious: Yes (Death, Hospitalization, Other)
  Sender: FDA-Public Use
  Company Number: US-INCYTE CORPORATION-2023IN013126

PATIENT

DRUGS (1)
  1. PEMAZYRE [Suspect]
     Active Substance: PEMIGATINIB
     Indication: Glioblastoma
     Dosage: UNK
     Route: 065
     Dates: start: 20240105, end: 20240221

REACTIONS (11)
  - Glioblastoma [Fatal]
  - Respiratory failure [Fatal]
  - Disease progression [Fatal]
  - Hypotension [Not Recovered/Not Resolved]
  - Shock [Not Recovered/Not Resolved]
  - Seizure [Recovered/Resolved]
  - Sepsis [Unknown]
  - Pneumonia [Unknown]
  - Clostridium test positive [Not Recovered/Not Resolved]
  - Product availability issue [Unknown]
  - Off label use [Unknown]

NARRATIVE: CASE EVENT DATE: 20240105
